FAERS Safety Report 10154124 (Version 2)
Quarter: 2014Q2

REPORT INFORMATION
  Report Type: Spontaneous
  Country: US (occurrence: US)
  Receive Date: 20140506
  Receipt Date: 20140506
  Transmission Date: 20141212
  Serious: Yes (Hospitalization)
  Sender: FDA-Public Use
  Company Number: US-ASTRAZENECA-2011SE66928

PATIENT
  Age: 71 Year
  Sex: Male

DRUGS (12)
  1. LISINOPRIL [Suspect]
     Route: 048
  2. SYMBICORT [Suspect]
     Dosage: 160/4.5 MCG, UNKNOWN
     Route: 055
  3. METOPROLOL TARTRATE [Concomitant]
     Route: 048
  4. ASPIRIN [Concomitant]
  5. METFORMIN [Concomitant]
  6. HCTZ [Concomitant]
  7. COMBIVENT [Concomitant]
     Dosage: 18-103 MCG
  8. LORAZEPAM [Concomitant]
  9. ACETAMINOPHEN HYDROCODONE [Concomitant]
     Dosage: 5-500 MG
  10. SIMVASTATIN [Concomitant]
  11. AMLODIPINE [Concomitant]
  12. MULTIVITAMIN [Concomitant]

REACTIONS (4)
  - Neoplasm malignant [Unknown]
  - Drug hypersensitivity [Unknown]
  - Cough [Unknown]
  - Therapy change [Unknown]
